FAERS Safety Report 14335989 (Version 1)
Quarter: 2020Q3

REPORT INFORMATION
  Report Type: Spontaneous
  Country: US (occurrence: US)
  Receive Date: 20171229
  Receipt Date: 20171229
  Transmission Date: 20201104
  Serious: Yes (Life-Threatening, Hospitalization)
  Sender: FDA-Public Use
  Company Number: US-ASTRAZENECA-2017SF32360

PATIENT

DRUGS (2)
  1. TREMELIMUMAB. [Suspect]
     Active Substance: TREMELIMUMAB
     Indication: CERVIX CARCINOMA
     Dosage: 75 MILLIGRAMS INTRAVENOUS (FIRST AND ONLY DOSE )
     Route: 042
     Dates: start: 20171214, end: 20171214
  2. IMFINZI [Suspect]
     Active Substance: DURVALUMAB
     Indication: CERVIX CARCINOMA
     Dosage: 1500 MILLIGRAMS INTRAVENOUS EVERY 4 WEEKS (FIRST AND ONLY DOSE )
     Route: 042
     Dates: start: 20171214, end: 20171214

REACTIONS (7)
  - Transaminases increased [Unknown]
  - Chest pain [Unknown]
  - Myocarditis [Unknown]
  - Pneumonitis [Unknown]
  - Product use in unapproved indication [Unknown]
  - Dyspnoea [Unknown]
  - Off label use [Unknown]

NARRATIVE: CASE EVENT DATE: 20171221
